FAERS Safety Report 23503607 (Version 2)
Quarter: 2024Q2

REPORT INFORMATION
  Report Type: Report from Study
  Country: US (occurrence: US)
  Receive Date: 20240208
  Receipt Date: 20240508
  Transmission Date: 20240716
  Serious: Yes (Hospitalization)
  Sender: FDA-Public Use
  Company Number: US-ABBVIE-5625020

PATIENT
  Age: 65 Year
  Sex: Male

DRUGS (1)
  1. SKYRIZI [Suspect]
     Active Substance: RISANKIZUMAB-RZAA
     Indication: Product used for unknown indication
     Route: 058
     Dates: start: 20230619

REACTIONS (4)
  - Psoriatic arthropathy [Unknown]
  - Hypoacusis [Unknown]
  - Unevaluable event [Unknown]
  - Fall [Unknown]

NARRATIVE: CASE EVENT DATE: 20240401
